FAERS Safety Report 7327941-X (Version None)
Quarter: 2011Q1

REPORT INFORMATION
  Report Type: 
  Country: None (occurrence: None)
  Receive Date: 20110303
  Receipt Date: 20110223
  Transmission Date: 20110831
  Serious: No
  Sender: FDA-Public Use
  Company Number: US-JNJFOC-20110207959

PATIENT
  Sex: Female
  Weight: 68.95 kg

DRUGS (3)
  1. UNKNOWN MEDICATION [Concomitant]
  2. DURAGESIC-50 [Suspect]
     Indication: PAIN
     Route: 062
  3. DURAGESIC-50 [Suspect]
     Route: 062

REACTIONS (2)
  - DRUG ADMINISTERED AT INAPPROPRIATE SITE [None]
  - PRODUCT ADHESION ISSUE [None]
